FAERS Safety Report 12457730 (Version 1)
Quarter: 2016Q2

REPORT INFORMATION
  Report Type: Spontaneous
  Country: US (occurrence: US)
  Receive Date: 20160611
  Receipt Date: 20160611
  Transmission Date: 20160815
  Serious: Yes (Other)
  Sender: FDA-Public Use
  Company Number: US-ACCORD-041275

PATIENT
  Age: 39 Year
  Sex: Female

DRUGS (4)
  1. SERTRALINE [Suspect]
     Active Substance: SERTRALINE HYDROCHLORIDE
     Indication: ANXIETY
  2. VENLAFAXINE/VENLAFAXINE HYDROCHLORIDE [Interacting]
     Active Substance: VENLAFAXINE HYDROCHLORIDE
     Indication: PRODUCT USED FOR UNKNOWN INDICATION
  3. ALPRAZOLAM. [Suspect]
     Active Substance: ALPRAZOLAM
     Indication: PHOBIA OF FLYING
  4. ZOLPIDEM [Interacting]
     Active Substance: ZOLPIDEM\ZOLPIDEM TARTRATE
     Indication: INSOMNIA
     Dosage: AT NIGHT

REACTIONS (19)
  - Agitation [Recovered/Resolved]
  - Feeling abnormal [None]
  - Euphoric mood [Recovered/Resolved]
  - Homicide [Recovered/Resolved]
  - Death of relative [None]
  - Drug interaction [Recovered/Resolved]
  - Aggression [Recovered/Resolved]
  - Mental status changes [None]
  - Delirium [Recovered/Resolved]
  - Intentional overdose [None]
  - Toxicity to various agents [Recovered/Resolved]
  - Suicidal ideation [Recovered/Resolved]
  - Emotional poverty [None]
  - Neurotoxicity [None]
  - Restlessness [Recovered/Resolved]
  - Inappropriate schedule of drug administration [None]
  - Overdose [Recovered/Resolved]
  - Akathisia [Recovered/Resolved]
  - Divorced [None]
